FAERS Safety Report 5070137-5 (Version None)
Quarter: 2006Q3

REPORT INFORMATION
  Report Type: 
  Country: None (occurrence: None)
  Receive Date: 20060802
  Receipt Date: 20060802
  Transmission Date: 20061208
  Serious: Yes (Hospitalization)
  Sender: FDA-Public Use
  Company Number: None

PATIENT
  Age: 72 Year
  Sex: Male
  Weight: 83.9154 kg

DRUGS (13)
  1. MEGACE [Suspect]
     Indication: WEIGHT DECREASED
     Dosage: 20ML PO QD
     Route: 048
     Dates: start: 20060517
  2. LIPITOR [Concomitant]
  3. VITAMIN E+C [Concomitant]
  4. ALOXI [Concomitant]
  5. CARBOPLATIN [Concomitant]
  6. ASPIRIN [Concomitant]
  7. DCN [Concomitant]
  8. DECADRON [Concomitant]
  9. TOPROL-XL [Concomitant]
  10. ISOSORBIDE MONONITRATE [Concomitant]
  11. TAGAMET [Concomitant]
  12. KYTRIL [Concomitant]
  13. GEMZAR [Concomitant]

REACTIONS (1)
  - ATRIAL FIBRILLATION [None]
